FAERS Safety Report 17195466 (Version 1)
Quarter: 2020Q1

REPORT INFORMATION
  Report Type: Spontaneous
  Country: US (occurrence: US)
  Receive Date: 20191223
  Receipt Date: 20191223
  Transmission Date: 20200409
  Serious: Yes (Hospitalization, Other)
  Sender: FDA-Public Use
  Company Number: None

PATIENT
  Age: 59 Year
  Sex: Female
  Weight: 67.5 kg

DRUGS (5)
  1. HUMIRA [Suspect]
     Active Substance: ADALIMUMAB
     Indication: COLITIS ULCERATIVE
     Dosage: ?          OTHER FREQUENCY:WEEKLY;?
     Route: 058
     Dates: start: 20180611, end: 20191202
  2. HUMIRA [Suspect]
     Active Substance: ADALIMUMAB
     Indication: CROHN^S DISEASE
     Dosage: ?          OTHER FREQUENCY:WEEKLY;?
     Route: 058
     Dates: start: 20180611, end: 20191202
  3. MTX [Concomitant]
     Active Substance: METHOTREXATE SODIUM
     Dates: start: 20190201, end: 20190601
  4. CITALOPRAM [Concomitant]
     Active Substance: CITALOPRAM HYDROBROMIDE
     Dates: start: 20171201, end: 20191223
  5. IMURAN [Concomitant]
     Active Substance: AZATHIOPRINE
     Dates: start: 20190901, end: 20191223

REACTIONS (12)
  - Dizziness [None]
  - Somnolence [None]
  - Headache [None]
  - Posterior reversible encephalopathy syndrome [None]
  - Nausea [None]
  - Seizure [None]
  - Cognitive disorder [None]
  - Apraxia [None]
  - Vomiting [None]
  - Blood pressure systolic increased [None]
  - Brain oedema [None]
  - Executive dysfunction [None]

NARRATIVE: CASE EVENT DATE: 20191203
